FAERS Safety Report 7726690-3 (Version None)
Quarter: 2011Q3

REPORT INFORMATION
  Report Type: 
  Country: None (occurrence: None)
  Receive Date: 20110902
  Receipt Date: 20110902
  Transmission Date: 20111222
  Serious: Yes (Hospitalization)
  Sender: FDA-Public Use
  Company Number: None

PATIENT
  Sex: Male
  Weight: 283.49 kg

DRUGS (1)
  1. STRATTERA [Suspect]
     Indication: ATTENTION DEFICIT/HYPERACTIVITY DISORDER
     Dosage: ???
     Route: 048
     Dates: start: 20110824, end: 20110824

REACTIONS (4)
  - DRY MOUTH [None]
  - EAR INFECTION [None]
  - VOMITING [None]
  - NAUSEA [None]
